FAERS Safety Report 9353429 (Version 1)
Quarter: 2013Q2

REPORT INFORMATION
  Report Type: Spontaneous
  Country: VE (occurrence: VE)
  Receive Date: 20130618
  Receipt Date: 20130618
  Transmission Date: 20140414
  Serious: Yes (Death)
  Sender: FDA-Public Use
  Company Number: VE-PFIZER INC-2013182020

PATIENT
  Sex: Male

DRUGS (1)
  1. CADUET [Suspect]
     Dosage: [AMLODIPINE BESILATE 5MG]/ [ATORVASTATIN CALCIUM 10MG], UNK

REACTIONS (1)
  - Death [Fatal]
